FAERS Safety Report 22653084 (Version 1)
Quarter: 2023Q2

REPORT INFORMATION
  Report Type: Spontaneous
  Country: NL (occurrence: NL)
  Receive Date: 20230629
  Receipt Date: 20230629
  Transmission Date: 20230722
  Serious: Yes (Disabling)
  Sender: FDA-Public Use
  Company Number: None

PATIENT
  Sex: Female
  Weight: 63 kg

DRUGS (1)
  1. BUDESONIDE [Suspect]
     Active Substance: BUDESONIDE
     Indication: Autoimmune hepatitis
     Dosage: 9 MILLIGRAM DAILY; 1X3 PER DAY FOR 10 MONTHS  , BRAND NAME NOT SPECIFIED
     Dates: start: 20210301

REACTIONS (2)
  - Osteoporosis [Not Recovered/Not Resolved]
  - Spinal fracture [Not Recovered/Not Resolved]
